FAERS Safety Report 24383826 (Version 3)
Quarter: 2025Q2

REPORT INFORMATION
  Report Type: Spontaneous
  Country: US (occurrence: US)
  Receive Date: 20241001
  Receipt Date: 20250402
  Transmission Date: 20250716
  Serious: No
  Sender: SANOFI AVENTIS
  Company Number: US-SA-2024SA273164

PATIENT
  Age: 72 Year
  Sex: Female

DRUGS (1)
  1. DUPIXENT [Suspect]
     Active Substance: DUPILUMAB
     Indication: Connective tissue disorder
     Dosage: 300 MG, QOW
     Route: 058

REACTIONS (10)
  - Skin ulcer haemorrhage [Unknown]
  - Skin weeping [Unknown]
  - Scar [Unknown]
  - Sleep disorder due to a general medical condition [Unknown]
  - Dry skin [Unknown]
  - Skin burning sensation [Unknown]
  - Haemorrhage [Unknown]
  - Blister [Unknown]
  - Dermatitis [Unknown]
  - Product use in unapproved indication [Unknown]
